FAERS Safety Report 8319110-1 (Version None)
Quarter: 2012Q2

REPORT INFORMATION
  Report Type: 
  Country: None (occurrence: None)
  Receive Date: 20120427
  Receipt Date: 20120424
  Transmission Date: 20120825
  Serious: Yes (Hospitalization, Disabling, Other)
  Sender: FDA-Public Use
  Company Number: US-MERCK-1109USA00243

PATIENT
  Age: 11 Year
  Sex: Female

DRUGS (3)
  1. BONIVA [Concomitant]
     Indication: OSTEOGENESIS IMPERFECTA
     Route: 048
     Dates: start: 19980101
  2. REQUIP [Concomitant]
     Route: 065
  3. FOSAMAX [Suspect]
     Indication: OSTEOGENESIS IMPERFECTA
     Route: 048
     Dates: start: 19980101, end: 20080822

REACTIONS (22)
  - DEVICE FAILURE [None]
  - IMPAIRED HEALING [None]
  - TOOTHACHE [None]
  - TOOTH DISCOLOURATION [None]
  - DRUG INEFFECTIVE [None]
  - LIMB INJURY [None]
  - FALL [None]
  - GASTROINTESTINAL DISORDER [None]
  - SCOLIOSIS [None]
  - PAIN IN EXTREMITY [None]
  - ORAL PAIN [None]
  - TONSILLAR DISORDER [None]
  - ROAD TRAFFIC ACCIDENT [None]
  - SCAR [None]
  - DENTAL CARIES [None]
  - OFF LABEL USE [None]
  - BONE DISORDER [None]
  - FEMUR FRACTURE [None]
  - ANAEMIA [None]
  - OSTEOPENIA [None]
  - LIMB DEFORMITY [None]
  - TOOTH FRACTURE [None]
